FAERS Safety Report 15517082 (Version 1)
Quarter: 2018Q4

REPORT INFORMATION
  Report Type: Spontaneous
  Country: US (occurrence: US)
  Receive Date: 20181011
  Receipt Date: 20181011
  Transmission Date: 20190205
  Serious: No
  Sender: FDA-Public Use
  Company Number: None

PATIENT
  Age: 17 Year
  Sex: Male

DRUGS (1)
  1. MEKINIST [Suspect]
     Active Substance: TRAMETINIB DIMETHYL SULFOXIDE
     Indication: SPINAL MENINGIOMA MALIGNANT
     Route: 048
     Dates: start: 201810

REACTIONS (1)
  - Off label use [None]

NARRATIVE: CASE EVENT DATE: 20181004
